FAERS Safety Report 22367087 (Version 1)
Quarter: 2023Q2

REPORT INFORMATION
  Report Type: Spontaneous
  Country: US (occurrence: None)
  Receive Date: 20230525
  Receipt Date: 20230525
  Transmission Date: 20230722
  Serious: Yes (Hospitalization)
  Sender: FDA-Public Use
  Company Number: None

PATIENT
  Age: 89 Year
  Sex: Male
  Weight: 70.65 kg

DRUGS (1)
  1. VENLAFAXINE [Suspect]
     Active Substance: VENLAFAXINE HYDROCHLORIDE
     Indication: Pain
     Dates: start: 20230427, end: 20230516

REACTIONS (7)
  - Fatigue [None]
  - Chills [None]
  - Night sweats [None]
  - Weight decreased [None]
  - Lethargy [None]
  - Blood lactic acid increased [None]
  - Anaemia [None]

NARRATIVE: CASE EVENT DATE: 20230525
